FAERS Safety Report 5894759-4 (Version None)
Quarter: 2008Q3

REPORT INFORMATION
  Report Type: 
  Country: None (occurrence: None)
  Receive Date: 20080924
  Receipt Date: 20080424
  Transmission Date: 20090109
  Serious: No
  Sender: FDA-Public Use
  Company Number: US-ASTRAZENECA-2008UW08422

PATIENT
  Age: 67 Year
  Sex: Female
  Weight: 56.7 kg

DRUGS (7)
  1. SEROQUEL [Suspect]
     Indication: HEADACHE
     Route: 048
  2. SEROQUEL [Suspect]
     Route: 048
     Dates: end: 20080301
  3. QUINAPRIL [Concomitant]
  4. VERAPAMIL [Concomitant]
  5. HYDROCHLOROTHIAZIDE [Concomitant]
  6. EVISTA [Concomitant]
  7. SIMVASTATIN [Concomitant]

REACTIONS (1)
  - ALOPECIA [None]
